FAERS Safety Report 5280779-X (Version None)
Quarter: 2007Q1

REPORT INFORMATION
  Report Type: 
  Country: None (occurrence: None)
  Receive Date: 20070323
  Receipt Date: 20070319
  Transmission Date: 20070707
  Serious: Yes (Death)
  Sender: FDA-Public Use
  Company Number: 2007-01434

PATIENT
  Age: 17 Year
  Sex: 0

DRUGS (2)
  1. DIPHENHYDRAMINE HCL [Suspect]
  2. UNKNOWN DRUG [Suspect]

REACTIONS (1)
  - CARDIO-RESPIRATORY ARREST [None]
